FAERS Safety Report 10090142 (Version 2)
Quarter: 2014Q2

REPORT INFORMATION
  Report Type: Spontaneous
  Country: US (occurrence: US)
  Receive Date: 20140421
  Receipt Date: 20140507
  Transmission Date: 20141212
  Serious: Yes (Other)
  Sender: FDA-Public Use
  Company Number: US-SHIRE-US201401232

PATIENT
  Sex: Male

DRUGS (6)
  1. MAS (MIXED AMPHETAMINE SALTS) [Suspect]
     Indication: PRODUCT USED FOR UNKNOWN INDICATION
     Dosage: 20 MG, UNKNOWN
     Route: 048
     Dates: start: 19980207, end: 199806
  2. DEPAKOTE [Suspect]
     Indication: PRODUCT USED FOR UNKNOWN INDICATION
     Dosage: 250 MG, UNKNOWN
     Route: 065
     Dates: start: 19971008
  3. CLONIDINE [Suspect]
     Indication: PRODUCT USED FOR UNKNOWN INDICATION
     Dosage: 0.1 MG, UNKNOWN
     Route: 065
     Dates: start: 19971230
  4. RISPERDAL [Suspect]
     Indication: PRODUCT USED FOR UNKNOWN INDICATION
     Dosage: 1 MG, UNKNOWN
     Route: 065
     Dates: start: 19980420
  5. DEXEDRINE [Suspect]
     Indication: PRODUCT USED FOR UNKNOWN INDICATION
     Dosage: 15 MG, UNKNOWN
     Route: 065
     Dates: start: 19980905
  6. FLURAZEPAM [Suspect]
     Indication: PRODUCT USED FOR UNKNOWN INDICATION
     Dosage: 15 MG, UNKNOWN
     Route: 065
     Dates: start: 19980509

REACTIONS (11)
  - Suicide attempt [Unknown]
  - Liver disorder [Unknown]
  - Crohn^s disease [Unknown]
  - Infertility male [Not Recovered/Not Resolved]
  - Depression [Not Recovered/Not Resolved]
  - Gynaecomastia [Unknown]
  - Mood altered [Unknown]
  - Abnormal weight gain [Unknown]
  - Insomnia [Not Recovered/Not Resolved]
  - Hypertension [Unknown]
  - Anxiety [Not Recovered/Not Resolved]
